FAERS Safety Report 5272733-9 (Version None)
Quarter: 2007Q1

REPORT INFORMATION
  Report Type: 
  Country: None (occurrence: None)
  Receive Date: 20070322
  Receipt Date: 20070308
  Transmission Date: 20070707
  Serious: Yes (Hospitalization)
  Sender: FDA-Public Use
  Company Number: DE-ROCHE-486774

PATIENT
  Sex: Female

DRUGS (5)
  1. GRANISETRON  HCL [Suspect]
     Indication: DRUG USE FOR UNKNOWN INDICATION
     Route: 042
     Dates: start: 20060908
  2. DOCETAXEL [Suspect]
     Indication: BREAST CANCER
     Route: 042
     Dates: start: 20060908, end: 20060908
  3. GEMCITABINE [Suspect]
     Indication: BREAST CANCER
     Route: 048
     Dates: start: 20060908, end: 20060908
  4. EMEND [Suspect]
     Indication: DRUG USE FOR UNKNOWN INDICATION
     Route: 048
     Dates: start: 20060908, end: 20060910
  5. DEXAMETHASONE [Suspect]
     Indication: DRUG USE FOR UNKNOWN INDICATION
     Route: 048
     Dates: start: 20060908, end: 20060909

REACTIONS (5)
  - CYSTITIS [None]
  - DIARRHOEA [None]
  - FATIGUE [None]
  - PAIN [None]
  - PYREXIA [None]
